FAERS Safety Report 13381433 (Version 2)
Quarter: 2017Q2

REPORT INFORMATION
  Report Type: Report from Study
  Country: US (occurrence: US)
  Receive Date: 20170329
  Receipt Date: 20170404
  Transmission Date: 20170830
  Serious: Yes (Other)
  Sender: FDA-Public Use
  Company Number: US-GILEAD-2017-0262922

PATIENT
  Age: 79 Year
  Sex: Female
  Weight: 81 kg

DRUGS (23)
  1. AMBRISENTAN [Suspect]
     Active Substance: AMBRISENTAN
     Indication: PULMONARY ARTERIAL HYPERTENSION
     Dosage: 5 MG, QD
     Route: 048
     Dates: start: 20170301, end: 20170305
  2. ADVAIR HFA [Concomitant]
     Active Substance: FLUTICASONE PROPIONATE\SALMETEROL XINAFOATE
  3. MONTELUKAST SODIUM. [Concomitant]
     Active Substance: MONTELUKAST SODIUM
  4. ALLOPURINOL. [Concomitant]
     Active Substance: ALLOPURINOL
  5. GLUCOSAMINE CHONDROITIN            /01430901/ [Concomitant]
  6. GLUCOSAMINE [Concomitant]
     Active Substance: GLUCOSAMINE
  7. NASONEX [Concomitant]
     Active Substance: MOMETASONE FUROATE
  8. GABAPENTIN. [Concomitant]
     Active Substance: GABAPENTIN
  9. PROAIR HFA [Concomitant]
     Active Substance: ALBUTEROL SULFATE
  10. PROBIOTIC                          /06395501/ [Concomitant]
     Active Substance: BIFIDOBACTERIUM ANIMALIS SUBSP. LACTIS
  11. DILTIAZEM. [Concomitant]
     Active Substance: DILTIAZEM
  12. POTASSIUM [Concomitant]
     Active Substance: POTASSIUM
  13. TRIAMTERENE. [Concomitant]
     Active Substance: TRIAMTERENE
  14. CALCIUM [Concomitant]
     Active Substance: CALCIUM
  15. PREVACID [Concomitant]
     Active Substance: LANSOPRAZOLE
  16. DIGOXIN. [Concomitant]
     Active Substance: DIGOXIN
  17. FOLIC ACID. [Concomitant]
     Active Substance: FOLIC ACID
  18. LASIX [Concomitant]
     Active Substance: FUROSEMIDE
  19. PREDNISONE. [Concomitant]
     Active Substance: PREDNISONE
  20. ADCIRCA [Suspect]
     Active Substance: TADALAFIL
     Indication: PULMONARY ARTERIAL HYPERTENSION
     Dosage: 20 MG, UNK
     Route: 048
     Dates: start: 20170301, end: 20170305
  21. LANSOPRAZOLE. [Concomitant]
     Active Substance: LANSOPRAZOLE
  22. LISINOPRIL. [Concomitant]
     Active Substance: LISINOPRIL
  23. VITAMIN B12 [Concomitant]
     Active Substance: CYANOCOBALAMIN

REACTIONS (6)
  - Orbital oedema [Recovered/Resolved]
  - Oedema peripheral [Recovered/Resolved]
  - Dyspnoea [Recovered/Resolved]
  - Malaise [Recovered/Resolved]
  - Urticaria [Recovered/Resolved]
  - Tremor [Recovered/Resolved]

NARRATIVE: CASE EVENT DATE: 20170224
